FAERS Safety Report 13336752 (Version 1)
Quarter: 2017Q1

REPORT INFORMATION
  Report Type: Spontaneous
  Country: JP (occurrence: JP)
  Receive Date: 20170315
  Receipt Date: 20170315
  Transmission Date: 20170428
  Serious: No
  Sender: FDA-Public Use
  Company Number: JP-LUPIN PHARMACEUTICALS INC.-2017-00744

PATIENT
  Age: 32 Year
  Sex: Female

DRUGS (7)
  1. LINEZOLID. [Suspect]
     Active Substance: LINEZOLID
     Indication: TUBERCULOSIS
     Dosage: UNK UNK,UNK,
     Route: 065
  2. CYCLOSERINE. [Concomitant]
     Active Substance: CYCLOSERINE
     Indication: TUBERCULOSIS
     Dosage: UNK UNK,UNK,UNKNOWN
     Route: 065
  3. PARA-AMINOSALICYLIC ACID [Concomitant]
     Active Substance: AMINOSALICYLIC ACID
     Indication: TUBERCULOSIS
     Dosage: UNK UNK,UNK,UNKNOWN
     Route: 065
  4. PYRAZINAMIDE. [Concomitant]
     Active Substance: PYRAZINAMIDE
     Indication: TUBERCULOSIS
     Dosage: UNK UNK,UNK,UNKNOWN
     Route: 065
  5. ISONIAZID. [Concomitant]
     Active Substance: ISONIAZID
     Indication: TUBERCULOSIS
     Dosage: HIGH DOSE
     Route: 065
  6. RIFABUTIN. [Concomitant]
     Active Substance: RIFABUTIN
     Indication: TUBERCULOSIS
     Dosage: UNK UNK,UNK,UNKNOWN
     Route: 065
  7. KANAMYCIN [Concomitant]
     Active Substance: KANAMYCIN\KANAMYCIN A SULFATE
     Indication: TUBERCULOSIS
     Dosage: UNK UNK,UNK,UNKNOWN
     Route: 065

REACTIONS (2)
  - Decreased appetite [None]
  - Anaemia [Unknown]
